FAERS Safety Report 8614796-6 (Version None)
Quarter: 2012Q3

REPORT INFORMATION
  Report Type: 
  Country: None (occurrence: None)
  Receive Date: 20120823
  Receipt Date: 20120814
  Transmission Date: 20120928
  Serious: Yes (Hospitalization)
  Sender: FDA-Public Use
  Company Number: DE-009507513-1002USA04001

PATIENT

DRUGS (21)
  1. RIBAVIRIN [Suspect]
     Dosage: 600 MG, QAM
     Route: 048
     Dates: start: 20100215
  2. RIBAVIRIN [Suspect]
     Dosage: 600 MG, QAM
     Route: 048
     Dates: start: 20100114, end: 20100117
  3. VANIPREVIR [Suspect]
     Dosage: 600 MG, QAM
     Dates: start: 20100114, end: 20100117
  4. RIBAVIRIN [Suspect]
     Indication: HEPATITIS C
     Dosage: 600 MG, QAM
     Route: 048
     Dates: start: 20091202, end: 20091216
  5. RIBAVIRIN [Suspect]
     Dosage: 600 MG, QPM
     Route: 048
     Dates: start: 20091224, end: 20091230
  6. VANIPREVIR [Suspect]
     Indication: HEPATITIS C
     Dosage: 600 MG, QAM
     Dates: start: 20091202, end: 20091216
  7. VANIPREVIR [Suspect]
     Dosage: 600 MG, QAM
     Dates: start: 20100119, end: 20100213
  8. RIBAVIRIN [Suspect]
     Dosage: 600 MG, QPM
     Route: 048
     Dates: start: 20091202, end: 20091222
  9. VANIPREVIR [Suspect]
     Dosage: 600 MG, QAM
     Dates: start: 20100215
  10. PEGINTERFERON ALFA-2B [Suspect]
     Indication: HEPATITIS C
     Dosage: 180 MICROGRAM, QW
     Route: 058
     Dates: start: 20091202
  11. RIBAVIRIN [Suspect]
     Dosage: 600 MG, QPM
     Route: 048
     Dates: start: 20100101
  12. VANIPREVIR [Suspect]
     Dosage: 600 MG, QAM
     Dates: start: 20091218, end: 20091231
  13. RIBAVIRIN [Suspect]
     Dosage: 600 MG, QAM
     Route: 048
     Dates: start: 20100102, end: 20100112
  14. RIBAVIRIN [Suspect]
     Dosage: 600 MG, QAM
     Route: 048
     Dates: start: 20100119, end: 20100213
  15. VANIPREVIR [Suspect]
     Dosage: 600 MG, QAM
     Dates: start: 20100102, end: 20100112
  16. RIBAVIRIN [Suspect]
     Dosage: 600 MG, QAM
     Route: 048
     Dates: start: 20091218, end: 20091231
  17. IBUPROFEN [Concomitant]
     Indication: BACK PAIN
     Dosage: 500 MG, QD
     Route: 048
     Dates: start: 20080101
  18. VANIPREVIR [Suspect]
     Dosage: 600 MG, QPM
     Dates: start: 20091202, end: 20091222
  19. VANIPREVIR [Suspect]
     Dosage: 600 MG, QPM
     Dates: start: 20091224, end: 20091230
  20. VANIPREVIR [Suspect]
     Dosage: 600 MG, QPM
     Dates: start: 20100101
  21. OPIPRAMOL HYDROCHLORIDE [Concomitant]
     Indication: PROPHYLAXIS
     Dosage: 20 MG, QD
     Route: 048
     Dates: start: 20091116, end: 20100831

REACTIONS (1)
  - NEPHROLITHIASIS [None]
